FAERS Safety Report 9401286 (Version 4)
Quarter: 2013Q4

REPORT INFORMATION
  Report Type: Spontaneous
  Country: US (occurrence: US)
  Receive Date: 20130715
  Receipt Date: 20131108
  Transmission Date: 20140711
  Serious: Yes (Hospitalization, Other)
  Sender: FDA-Public Use
  Company Number: US-GILEAD-2013-0079108

PATIENT
  Age: 65 Year
  Sex: Male

DRUGS (3)
  1. LETAIRIS [Suspect]
     Indication: PULMONARY ARTERIAL HYPERTENSION
     Dosage: 10 MG, QD
     Dates: start: 20111229
  2. LETAIRIS [Suspect]
     Indication: LEFT VENTRICULAR FAILURE
  3. VENTAVIS [Concomitant]
     Dosage: 5 DF, UNK

REACTIONS (7)
  - Cardiac failure congestive [Unknown]
  - Pneumonia [Recovering/Resolving]
  - Cough [Unknown]
  - Myocardial infarction [Unknown]
  - Syncope [Unknown]
  - Respiratory tract infection [Unknown]
  - Dyspnoea [Recovering/Resolving]
